FAERS Safety Report 9109370 (Version 2)
Quarter: 2013Q1

REPORT INFORMATION
  Report Type: Spontaneous
  Country: IT (occurrence: IT)
  Receive Date: 20130222
  Receipt Date: 20130307
  Transmission Date: 20140127
  Serious: Yes (Other)
  Sender: FDA-Public Use
  Company Number: IT-JNJFOC-20130206668

PATIENT
  Sex: 0

DRUGS (2)
  1. HUMAN CLOTTABLE PROTEIN/HUMAN THROMBIN [Suspect]
     Indication: INGUINAL HERNIA REPAIR
     Route: 061
  2. ALL OTHER THERAPEUTIC PRODUCTS [Concomitant]
     Indication: INGUINAL HERNIA REPAIR
     Route: 065

REACTIONS (5)
  - Inguinal hernia [Unknown]
  - Haematoma [Unknown]
  - Seroma [Unknown]
  - Procedural pain [Recovered/Resolved]
  - Off label use [Unknown]
